FAERS Safety Report 6499121-1 (Version None)
Quarter: 2009Q4

REPORT INFORMATION
  Report Type: 
  Country: None (occurrence: None)
  Receive Date: 20091215
  Receipt Date: 20091209
  Transmission Date: 20100525
  Serious: Yes (Disabling, Other)
  Sender: FDA-Public Use
  Company Number: JP-ABBOTT-08P-087-0478696-00

PATIENT
  Age: 4 Year
  Sex: Female

DRUGS (1)
  1. CEFDINIR [Suspect]
     Indication: DRUG USE FOR UNKNOWN INDICATION
     Route: 048
     Dates: start: 20060501, end: 20060601

REACTIONS (2)
  - TOXIC EPIDERMAL NECROLYSIS [None]
  - VISUAL IMPAIRMENT [None]
